FAERS Safety Report 4615827-0 (Version None)
Quarter: 2005Q1

REPORT INFORMATION
  Report Type: 
  Country: None (occurrence: None)
  Receive Date: 20050321
  Receipt Date: 20050310
  Transmission Date: 20050727
  Serious: Yes (Other)
  Sender: FDA-Public Use
  Company Number: GXKR2005US00741

PATIENT
  Age: 79 Year
  Sex: Female

DRUGS (1)
  1. METFORMIN (NGX) (METFORMIN) [Suspect]
     Indication: DIABETES MELLITUS NON-INSULIN-DEPENDENT
     Dosage: 1000 MG, BID

REACTIONS (4)
  - ANOREXIA [None]
  - BODY MASS INDEX DECREASED [None]
  - GLYCOSYLATED HAEMOGLOBIN INCREASED [None]
  - WEIGHT DECREASED [None]
